FAERS Safety Report 24616831 (Version 1)
Quarter: 2024Q4

REPORT INFORMATION
  Report Type: Spontaneous
  Country: US (occurrence: US)
  Receive Date: 20241114
  Receipt Date: 20241114
  Transmission Date: 20250115
  Serious: No
  Sender: OTSUKA
  Company Number: US-OTSUKA-2024_017181

PATIENT
  Sex: Female
  Weight: 56.7 kg

DRUGS (2)
  1. NUEDEXTA [Suspect]
     Active Substance: DEXTROMETHORPHAN HYDROBROMIDE\QUINIDINE SULFATE
     Indication: Inappropriate affect
     Dosage: 1 DF (20MG-10MG), BID (TWICE A DAY)
     Route: 065
     Dates: start: 2024
  2. VIMPAT [Suspect]
     Active Substance: LACOSAMIDE
     Indication: Seizure
     Dosage: UNK
     Route: 065

REACTIONS (5)
  - Inappropriate affect [Unknown]
  - Contusion [Unknown]
  - Malaise [Unknown]
  - Dyspnoea [Unknown]
  - Drug effective for unapproved indication [Unknown]
